FAERS Safety Report 22215220 (Version 1)
Quarter: 2023Q2

REPORT INFORMATION
  Report Type: Spontaneous
  Country: US (occurrence: None)
  Receive Date: 20230415
  Receipt Date: 20230415
  Transmission Date: 20230722
  Serious: No
  Sender: FDA-Public Use
  Company Number: 2023A080828

PATIENT
  Age: 34 Year
  Sex: Male

DRUGS (2)
  1. BRILINTA [Suspect]
     Active Substance: TICAGRELOR
     Route: 048
  2. JATENZO [Suspect]
     Active Substance: TESTOSTERONE UNDECANOATE

REACTIONS (1)
  - Nodule [Unknown]
